FAERS Safety Report 4939371-6 (Version None)
Quarter: 2006Q1

REPORT INFORMATION
  Report Type: 
  Country: None (occurrence: None)
  Receive Date: 20060306
  Receipt Date: 20060215
  Transmission Date: 20060701
  Serious: Yes (Hospitalization, Other)
  Sender: FDA-Public Use
  Company Number: PAR_0521_2006

PATIENT
  Age: 34 Year
  Sex: Male

DRUGS (5)
  1. VERAPAMIL EXTENDED-RELEASE [Suspect]
     Indication: BLOOD PRESSURE INCREASED
     Dosage: 3600 MG ONCE PO
     Route: 048
     Dates: start: 20050101, end: 20050101
  2. VERAPAMIL EXTENDED-RELEASE [Suspect]
     Indication: BLOOD PRESSURE INCREASED
     Dosage: 180 MG QD PO
     Route: 048
     Dates: start: 19980101, end: 20050101
  3. LEVOTHYROXINE SODIUM [Concomitant]
  4. LOSARTAN POTASSIUM [Concomitant]
  5. ATORVASTATIN CALCIUM [Concomitant]

REACTIONS (18)
  - ABDOMINAL DISTENSION [None]
  - ADRENAL INSUFFICIENCY [None]
  - ANURIA [None]
  - ATRIOVENTRICULAR BLOCK SECOND DEGREE [None]
  - BOWEL SOUNDS ABNORMAL [None]
  - BRADYCARDIA [None]
  - BUNDLE BRANCH BLOCK LEFT [None]
  - CARDIO-RESPIRATORY ARREST [None]
  - DRUG TOXICITY [None]
  - LACTIC ACIDOSIS [None]
  - OVERDOSE [None]
  - PILOERECTION [None]
  - PULMONARY HYPERTENSION [None]
  - PULSE ABSENT [None]
  - RALES [None]
  - SHOCK [None]
  - SOMNOLENCE [None]
  - VOMITING [None]
